FAERS Safety Report 14193696 (Version 1)
Quarter: 2017Q4

REPORT INFORMATION
  Report Type: Spontaneous
  Country: DE (occurrence: DE)
  Receive Date: 20171115
  Receipt Date: 20171115
  Transmission Date: 20180321
  Serious: Yes (Hospitalization)
  Sender: FDA-Public Use
  Company Number: DE-ALLERGAN-1764950US

PATIENT
  Sex: Female
  Weight: 2.4 kg

DRUGS (2)
  1. URSODEOXYCHOLIC ACID UNK [Suspect]
     Active Substance: URSODIOL
     Dosage: 13 MG/KG, QD
     Route: 064
  2. URSODEOXYCHOLIC ACID UNK [Suspect]
     Active Substance: URSODIOL
     Indication: MATERNAL EXPOSURE TIMING UNSPECIFIED
     Dosage: 250 MG, BID
     Route: 064

REACTIONS (3)
  - Premature baby [Unknown]
  - Tachypnoea [Recovered/Resolved]
  - Respiratory distress [Recovered/Resolved]
